FAERS Safety Report 8427618-3 (Version None)
Quarter: 2012Q2

REPORT INFORMATION
  Report Type: 
  Country: None (occurrence: None)
  Receive Date: 20120323
  Receipt Date: 20111125
  Transmission Date: 20120825
  Serious: Yes (Other)
  Sender: FDA-Public Use
  Company Number: 163-21880-11113964

PATIENT
  Age: 70 Year
  Sex: Male
  Weight: 90.7194 kg

DRUGS (1)
  1. REVLIMID [Suspect]
     Indication: MULTIPLE MYELOMA
     Dosage: 25 MG, DAILY, DAYS 1-21 AS DIRECTED, PO
     Route: 048
     Dates: start: 20110803

REACTIONS (1)
  - THROMBOSIS [None]
